FAERS Safety Report 20102122 (Version 1)
Quarter: 2021Q4

REPORT INFORMATION
  Report Type: Spontaneous
  Country: US (occurrence: None)
  Receive Date: 20211122
  Receipt Date: 20211122
  Transmission Date: 20220303
  Serious: Yes (Life-Threatening, Hospitalization, Disabling)
  Sender: FDA-Public Use
  Company Number: None

PATIENT
  Age: 14 Year
  Sex: Female
  Weight: 121.5 kg

DRUGS (2)
  1. FLUOXETINE [Suspect]
     Active Substance: FLUOXETINE HYDROCHLORIDE
     Indication: Anxiety
     Dosage: OTHER QUANTITY : 1 CAPSULE(S);?
     Route: 048
     Dates: start: 20210808, end: 20211115
  2. FLUOXETINE [Suspect]
     Active Substance: FLUOXETINE HYDROCHLORIDE
     Indication: Post-traumatic stress disorder

REACTIONS (15)
  - Influenza like illness [None]
  - Sinus pain [None]
  - Paranasal sinus discomfort [None]
  - Upper-airway cough syndrome [None]
  - Oropharyngeal pain [None]
  - Lacrimation increased [None]
  - Headache [None]
  - Aggression [None]
  - Screaming [None]
  - Anxiety [None]
  - Decreased appetite [None]
  - Dehydration [None]
  - Tremor [None]
  - Crying [None]
  - Mood swings [None]

NARRATIVE: CASE EVENT DATE: 20211013
